FAERS Safety Report 11130781 (Version 1)
Quarter: 2015Q2

REPORT INFORMATION
  Report Type: Spontaneous
  Country: US (occurrence: None)
  Receive Date: 20150521
  Receipt Date: 20150521
  Transmission Date: 20150821
  Serious: No
  Sender: FDA-Public Use
  Company Number: None

PATIENT
  Age: 44 Year
  Sex: Female

DRUGS (6)
  1. INTERFERON BETA-1B [Concomitant]
     Active Substance: INTERFERON BETA-1B
  2. NORETHINDRONE. [Concomitant]
     Active Substance: NORETHINDRONE
  3. LORAZEPAM. [Concomitant]
     Active Substance: LORAZEPAM
  4. ERGOCALCIFEROL. [Concomitant]
     Active Substance: ERGOCALCIFEROL
  5. BACLOFEN. [Concomitant]
     Active Substance: BACLOFEN
  6. AMPYRA [Suspect]
     Active Substance: DALFAMPRIDINE
     Indication: MULTIPLE SCLEROSIS
     Route: 048
     Dates: start: 201209

REACTIONS (3)
  - Laboratory test abnormal [None]
  - Glucose urine present [None]
  - Protein urine present [None]

NARRATIVE: CASE EVENT DATE: 20150203
